FAERS Safety Report 9192071 (Version 1)
Quarter: 2013Q1

REPORT INFORMATION
  Report Type: Spontaneous
  Country: US (occurrence: None)
  Receive Date: 20130325
  Receipt Date: 20130325
  Transmission Date: 20140127
  Serious: Yes (Other)
  Sender: FDA-Public Use
  Company Number: SYM-2013-01692

PATIENT
  Age: 55 Year
  Sex: Male

DRUGS (5)
  1. MYSOLINE (PRIMIDONE) [Suspect]
     Indication: PRODUCT USED FOR UNKNOWN INDICATION
     Dates: start: 2010
  2. TOPAMAX (TOPIRAMATE) [Suspect]
     Dates: start: 2010
  3. LAMICTAL (LAMOTRIGINE) TABLET [Suspect]
     Route: 048
     Dates: start: 2010
  4. KEPPRA (LEVETIRACETAM) [Suspect]
     Dates: start: 2010
  5. UNKNOWN [Suspect]
     Dates: start: 201212

REACTIONS (1)
  - Grand mal convulsion [None]
